FAERS Safety Report 5671977-1 (Version None)
Quarter: 2008Q1

REPORT INFORMATION
  Report Type: 
  Country: None (occurrence: None)
  Receive Date: 20080317
  Receipt Date: 20080317
  Transmission Date: 20080703
  Serious: Yes (Other)
  Sender: FDA-Public Use
  Company Number: None

PATIENT
  Age: 32 Year
  Sex: Female
  Weight: 47.6277 kg

DRUGS (2)
  1. LEVAQUIN [Suspect]
     Indication: SINUSITIS
     Dosage: 500 MG QD PO
     Route: 048
     Dates: start: 20070510, end: 20070517
  2. MEDROL [Concomitant]

REACTIONS (6)
  - FATIGUE [None]
  - HYPOAESTHESIA [None]
  - MYALGIA [None]
  - NEUROPATHY PERIPHERAL [None]
  - PARAESTHESIA [None]
  - QUALITY OF LIFE DECREASED [None]
